FAERS Safety Report 6639503-8 (Version None)
Quarter: 2010Q1

REPORT INFORMATION
  Report Type: 
  Country: None (occurrence: None)
  Receive Date: 20100318
  Receipt Date: 20100308
  Transmission Date: 20100710
  Serious: Yes (Hospitalization)
  Sender: FDA-Public Use
  Company Number: GB-JNJFOC-20100303209

PATIENT
  Age: 23 Year
  Sex: Male

DRUGS (2)
  1. ACETAMINOPHEN AND CODEINE PHOSPHATE [Suspect]
     Indication: DRUG USE FOR UNKNOWN INDICATION
     Route: 065
  2. ETHANOL [Suspect]
     Indication: DRUG USE FOR UNKNOWN INDICATION
     Route: 048

REACTIONS (2)
  - COMA SCALE ABNORMAL [None]
  - OVERDOSE [None]
